FAERS Safety Report 8174154-8 (Version None)
Quarter: 2012Q1

REPORT INFORMATION
  Report Type: 
  Country: None (occurrence: None)
  Receive Date: 20120229
  Receipt Date: 20120221
  Transmission Date: 20120608
  Serious: No
  Sender: FDA-Public Use
  Company Number: US-B.I. PHARMACEUTICALS,INC./RIDGEFIELD-2012-BP-03363BP

PATIENT
  Sex: Male

DRUGS (12)
  1. AMITRIPTYLINE HCL [Concomitant]
     Indication: DEPRESSION
     Route: 048
     Dates: start: 20060101
  2. MULTI-VITAMIN [Concomitant]
     Indication: PROPHYLAXIS
     Route: 048
     Dates: start: 20060101
  3. NITROSTAT [Concomitant]
     Indication: CHEST PAIN
     Route: 048
     Dates: start: 20060101
  4. CRESTOR [Concomitant]
     Indication: BLOOD CHOLESTEROL INCREASED
     Route: 048
     Dates: start: 20060101
  5. LISINOPRIL [Concomitant]
     Indication: HYPERTENSION
     Dosage: 20 MG
     Route: 048
     Dates: start: 20060101
  6. ZETIA [Concomitant]
     Indication: BLOOD CHOLESTEROL INCREASED
     Route: 048
     Dates: start: 20060101
  7. HYDRALAZINE HCL [Concomitant]
     Indication: HYPERTENSION
     Dosage: 150 MG
     Route: 048
     Dates: start: 20060101
  8. GLUCOSAMINE CHONDROITIN [Concomitant]
     Indication: PROPHYLAXIS
     Route: 048
  9. PRADAXA [Suspect]
     Indication: ATRIAL FIBRILLATION
     Dosage: 300 MG
     Route: 048
     Dates: start: 20120101
  10. ACETAMINOPHEN [Concomitant]
     Indication: ARTHRALGIA
     Route: 048
     Dates: start: 20020101
  11. METOPROLOL SUCCINATE [Concomitant]
     Indication: HYPERTENSION
     Route: 048
     Dates: start: 20060101
  12. ASPIRIN [Concomitant]
     Indication: PROPHYLAXIS
     Route: 048
     Dates: start: 20060101

REACTIONS (4)
  - MUSCULOSKELETAL PAIN [None]
  - PAIN IN EXTREMITY [None]
  - ABDOMINAL DISCOMFORT [None]
  - ARTHRALGIA [None]
